FAERS Safety Report 10101749 (Version 2)
Quarter: 2014Q2

REPORT INFORMATION
  Report Type: Spontaneous
  Country: US (occurrence: US)
  Receive Date: 20140424
  Receipt Date: 20140521
  Transmission Date: 20141212
  Serious: Yes (Life-Threatening, Hospitalization, Other)
  Sender: FDA-Public Use
  Company Number: US-BAYER-2014-056526

PATIENT
  Age: 90 Year
  Sex: Male

DRUGS (2)
  1. CIPROFLOXACIN [Suspect]
     Indication: CELLULITIS
     Dosage: UNK
  2. BACTRIM [Suspect]
     Indication: CELLULITIS
     Dosage: UNK

REACTIONS (10)
  - Acquired haemophilia with anti FVIII, XI, or XIII [Recovered/Resolved]
  - Obstructive airways disorder [Recovered/Resolved]
  - Periodontitis [Recovered/Resolved]
  - Parotid gland haemorrhage [Recovered/Resolved]
  - Swelling face [Recovered/Resolved]
  - Haematoma [Recovered/Resolved]
  - Ecchymosis [Recovered/Resolved]
  - Facial pain [Recovered/Resolved]
  - Local swelling [Recovered/Resolved]
  - Mouth haemorrhage [Recovered/Resolved]
